FAERS Safety Report 7419449-8 (Version None)
Quarter: 2011Q1

REPORT INFORMATION
  Report Type: 
  Country: None (occurrence: None)
  Receive Date: 20110302
  Receipt Date: 20101110
  Transmission Date: 20110831
  Serious: No
  Sender: FDA-Public Use
  Company Number: 021797

PATIENT
  Sex: Female
  Weight: 77.1 kg

DRUGS (3)
  1. BENTYL [Concomitant]
  2. CIMZIA [Suspect]
     Indication: CROHN'S DISEASE
     Dosage: (2 SYRINGES; FREQUENCY: 0, 2 AND 4, WILL START MONTHLY SUBCUTANEOUS)
     Route: 058
     Dates: start: 20101001
  3. AZATHIOPRINE [Concomitant]

REACTIONS (1)
  - INFLUENZA LIKE ILLNESS [None]
